FAERS Safety Report 10339815 (Version 2)
Quarter: 2014Q4

REPORT INFORMATION
  Report Type: Spontaneous
  Country: ES (occurrence: ES)
  Receive Date: 20140724
  Receipt Date: 20141030
  Transmission Date: 20150528
  Serious: Yes (Other)
  Sender: FDA-Public Use
  Company Number: ES-VERTEX PHARMACEUTICALS INC-2014-003229

PATIENT
  Sex: Male

DRUGS (5)
  1. RIBAVIRIN. [Suspect]
     Active Substance: RIBAVIRIN
     Indication: HEPATITIS C
     Dosage: UNK
     Route: 065
     Dates: start: 20140523
  2. PEGASYS [Suspect]
     Active Substance: PEGINTERFERON ALFA-2A
     Indication: HEPATITIS C
     Dosage: UNK
     Route: 065
     Dates: start: 20140523
  3. INCIVO [Suspect]
     Active Substance: TELAPREVIR
     Indication: HEPATITIS C
     Route: 048
     Dates: start: 20140523
  4. TRUVADA [Concomitant]
     Active Substance: EMTRICITABINE\TENOFOVIR DISOPROXIL FUMARATE
     Indication: HIV INFECTION
     Dosage: UNK
     Route: 065
  5. ISENTRESS [Concomitant]
     Active Substance: RALTEGRAVIR POTASSIUM
     Indication: HIV INFECTION
     Dosage: UNK

REACTIONS (12)
  - Alopecia [Recovering/Resolving]
  - Off label use [Unknown]
  - Erythema [Recovering/Resolving]
  - Eye swelling [Recovering/Resolving]
  - Skin exfoliation [Recovering/Resolving]
  - Rash generalised [Not Recovered/Not Resolved]
  - Photosensitivity reaction [Recovering/Resolving]
  - Dermatitis [Not Recovered/Not Resolved]
  - Headache [Recovered/Resolved]
  - Swelling face [Recovering/Resolving]
  - Malaise [Recovered/Resolved]
  - Pruritus [Not Recovered/Not Resolved]
